FAERS Safety Report 4583527-1 (Version None)
Quarter: 2005Q1

REPORT INFORMATION
  Report Type: 
  Country: None (occurrence: None)
  Receive Date: 20050211
  Receipt Date: 20050204
  Transmission Date: 20050727
  Serious: Yes (Death, Life-Threatening, Hospitalization, Other)
  Sender: FDA-Public Use
  Company Number: 2004-11-1376

PATIENT
  Age: 61 Year
  Sex: Female

DRUGS (5)
  1. PEG-INTRON [Suspect]
     Indication: HEPATITIS C
     Dosage: 0.5 MCG/KG SUBCUTANEOUS
     Route: 058
     Dates: start: 20030907, end: 20041119
  2. ESTRADIOL [Concomitant]
  3. DAFALGAN [Concomitant]
  4. NEXEN (NIMESULIDE) [Concomitant]
  5. HYDROXYPROGESTERONE CAPROATE [Concomitant]

REACTIONS (17)
  - ACUTE RESPIRATORY DISTRESS SYNDROME [None]
  - ANAEMIA [None]
  - BILIARY DILATATION [None]
  - BLISTER [None]
  - CEREBRAL HAEMORRHAGE [None]
  - CHOLECYSTITIS [None]
  - COMA [None]
  - DIALYSIS [None]
  - DYSPNOEA [None]
  - ESCHERICHIA INFECTION [None]
  - HEMIPLEGIA [None]
  - INTRACRANIAL HAEMATOMA [None]
  - LUNG INFECTION [None]
  - MENINGORRHAGIA [None]
  - PYREXIA [None]
  - SEPTIC SHOCK [None]
  - THROMBOCYTOPENIA [None]
